FAERS Safety Report 24726196 (Version 1)
Quarter: 2024Q4

REPORT INFORMATION
  Report Type: Spontaneous
  Country: US (occurrence: None)
  Receive Date: 20241211
  Receipt Date: 20241211
  Transmission Date: 20250115
  Serious: Yes (Hospitalization)
  Sender: Public
  Company Number: None

PATIENT
  Age: 44 Year
  Sex: Male

DRUGS (1)
  1. BUPROPION HCL ER (XL) [Suspect]
     Active Substance: BUPROPION HYDROCHLORIDE
     Indication: Affective disorder
     Dosage: FREQUENCY : DAILY;?
     Route: 048
     Dates: end: 20230709

REACTIONS (3)
  - Psychotic disorder [None]
  - Somnolence [None]
  - Drug ineffective [None]

NARRATIVE: CASE EVENT DATE: 20230908
